FAERS Safety Report 4369244-1 (Version None)
Quarter: 2004Q2

REPORT INFORMATION
  Report Type: 
  Country: None (occurrence: None)
  Receive Date: 20040603
  Receipt Date: 20040109
  Transmission Date: 20050107
  Serious: No
  Sender: FDA-Public Use
  Company Number: US-GLAXOSMITHKLINE-A0492246A

PATIENT
  Age: 61 Year
  Sex: Male
  Weight: 68.2 kg

DRUGS (3)
  1. AUGMENTIN [Suspect]
     Dosage: 2TAB TWICE PER DAY
     Route: 048
     Dates: start: 20040107, end: 20040108
  2. MULTIVITAMIN [Concomitant]
  3. AMOXICILLIN [Concomitant]
     Dosage: 1000MG PER DAY

REACTIONS (3)
  - DIARRHOEA [None]
  - DYSURIA [None]
  - GAMMA-GLUTAMYLTRANSFERASE INCREASED [None]
